FAERS Safety Report 24840252 (Version 1)
Quarter: 2025Q1

REPORT INFORMATION
  Report Type: Spontaneous
  Country: US (occurrence: None)
  Receive Date: 20250113
  Receipt Date: 20250113
  Transmission Date: 20250409
  Serious: Yes (Disabling, Other)
  Sender: FDA-CTU
  Company Number: None

PATIENT
  Age: 27 Year
  Sex: Male
  Weight: 72 kg

DRUGS (3)
  1. FINASTERIDE [Suspect]
     Active Substance: FINASTERIDE
     Indication: Alopecia
     Dates: start: 20220823, end: 20220922
  2. FINASTERIDE [Suspect]
     Active Substance: FINASTERIDE
     Indication: Alopecia
  3. Talafadil [Concomitant]

REACTIONS (28)
  - Impaired quality of life [None]
  - Loss of libido [None]
  - Insomnia [None]
  - Male sexual dysfunction [None]
  - Brain fog [None]
  - Memory impairment [None]
  - Cognitive disorder [None]
  - Fatigue [None]
  - Genital paraesthesia [None]
  - Paraesthesia [None]
  - Burning sensation [None]
  - Rosacea [None]
  - Anorgasmia [None]
  - Testicular pain [None]
  - Organic erectile dysfunction [None]
  - Muscle spasms [None]
  - Eye pain [None]
  - Impaired work ability [None]
  - Confusional state [None]
  - Disturbance in attention [None]
  - Depersonalisation/derealisation disorder [None]
  - Coordination abnormal [None]
  - Tinnitus [None]
  - Anhedonia [None]
  - Impaired driving ability [None]
  - Hand-eye coordination impaired [None]
  - Loss of personal independence in daily activities [None]
  - Memory impairment [None]

NARRATIVE: CASE EVENT DATE: 20220922
